FAERS Safety Report 7817769-6 (Version None)
Quarter: 2011Q4

REPORT INFORMATION
  Report Type: 
  Country: None (occurrence: None)
  Receive Date: 20111017
  Receipt Date: 20111011
  Transmission Date: 20120403
  Serious: Yes (Other)
  Sender: FDA-Public Use
  Company Number: US-PFIZER INC-2011229416

PATIENT
  Sex: Female
  Weight: 74.83 kg

DRUGS (15)
  1. PRISTIQ [Suspect]
     Indication: BIPOLAR I DISORDER
     Dosage: 100 MG, 1X/DAY
     Route: 048
     Dates: start: 20110501, end: 20110901
  2. PRISTIQ [Suspect]
     Indication: BIPOLAR DISORDER
     Dosage: UNK
     Dates: start: 20110901
  3. VESICARE [Concomitant]
     Dosage: 20MG
  4. PRAVACHOL [Concomitant]
     Indication: BLOOD CHOLESTEROL INCREASED
     Dosage: UNK
  5. FLEXERIL [Concomitant]
     Indication: BACK DISORDER
     Dosage: 15MG
  6. ATIVAN [Concomitant]
     Indication: DEPRESSION
     Dosage: 1 MG, DAILY
  7. NEURONTIN [Concomitant]
     Indication: BACK PAIN
     Dosage: 400MG
  8. KLONOPIN [Concomitant]
     Indication: RESTLESS LEGS SYNDROME
     Dosage: 2MG
  9. KLONOPIN [Concomitant]
     Indication: ANXIETY
     Dosage: 1 MG, DAILY
  10. FINASTERIDE [Concomitant]
     Dosage: UNK
  11. ATIVAN [Concomitant]
     Indication: ANXIETY
     Dosage: UNK
  12. ZESTRIL [Concomitant]
     Indication: HYPERTENSION
     Dosage: 20MG
  13. ATIVAN [Concomitant]
     Indication: SLEEP DISORDER
  14. NEURONTIN [Concomitant]
     Indication: INTERVERTEBRAL DISC PROTRUSION
     Dosage: 800 MG, 2X/DAY
  15. ABILIFY [Concomitant]
     Indication: BREAKTHROUGH PAIN
     Dosage: 5 MG, 1X/DAY

REACTIONS (4)
  - CONVULSION [None]
  - SUICIDAL IDEATION [None]
  - BLOOD CHOLESTEROL INCREASED [None]
  - WITHDRAWAL SYNDROME [None]
